FAERS Safety Report 19427119 (Version 2)
Quarter: 2021Q3

REPORT INFORMATION
  Report Type: Report from Study
  Country: US (occurrence: US)
  Receive Date: 20210617
  Receipt Date: 20210720
  Transmission Date: 20211014
  Serious: Yes (Death, Other)
  Sender: FDA-Public Use
  Company Number: US-ACADIA PHARMACEUTICALS INC.-ACA-2021-PIM-002168

PATIENT
  Sex: Male

DRUGS (13)
  1. NUPLAZID [Suspect]
     Active Substance: PIMAVANSERIN TARTRATE
     Indication: PARKINSON^S DISEASE
     Dosage: 34 MILLIGRAM, QD
     Route: 048
     Dates: end: 20210526
  2. CARBIDOPA/LEVODOPA [Concomitant]
     Active Substance: CARBIDOPA\LEVODOPA
  3. PAXIL [Concomitant]
     Active Substance: PAROXETINE HYDROCHLORIDE
     Dosage: 30
  4. TOLTERODINE [Concomitant]
     Active Substance: TOLTERODINE
     Dosage: 1 MILLIGRAM
  5. TAMSULOSIN [Concomitant]
     Active Substance: TAMSULOSIN
     Dosage: 0.4
  6. CREON [Concomitant]
     Active Substance: PANCRELIPASE AMYLASE\PANCRELIPASE LIPASE\PANCRELIPASE PROTEASE
  7. ASA [Concomitant]
     Active Substance: ASPIRIN
     Dosage: 81
  8. QUETIAPINE. [Concomitant]
     Active Substance: QUETIAPINE
     Dosage: 25
  9. COLACE [Concomitant]
     Active Substance: DOCUSATE SODIUM
  10. MEMANTINE. [Concomitant]
     Active Substance: MEMANTINE
     Dosage: 10
  11. NEXIUM [Concomitant]
     Active Substance: ESOMEPRAZOLE MAGNESIUM
     Dosage: 40
  12. RIVASTIGMINE. [Concomitant]
     Active Substance: RIVASTIGMINE
     Dosage: 6 MILLIGRAM
  13. SIMVASTATIN. [Concomitant]
     Active Substance: SIMVASTATIN
     Dosage: 10

REACTIONS (5)
  - Cardio-respiratory arrest [Recovered/Resolved]
  - Failure to thrive [Recovered/Resolved]
  - Hypertension [Recovered/Resolved]
  - Dysphagia [Recovered/Resolved]
  - Sarcopenia [Recovered/Resolved]
